FAERS Safety Report 4403784-1 (Version None)
Quarter: 2004Q3

REPORT INFORMATION
  Report Type: 
  Country: None (occurrence: None)
  Receive Date: 20040719
  Receipt Date: 20040709
  Transmission Date: 20050211
  Serious: Yes (Hospitalization)
  Sender: FDA-Public Use
  Company Number: 200419107BWH

PATIENT
  Age: 56 Year
  Sex: Female
  Weight: 115.6672 kg

DRUGS (14)
  1. CIPRO [Suspect]
     Indication: OTITIS MEDIA
     Dosage: BID, ORAL
     Route: 048
     Dates: start: 20040702, end: 20040706
  2. ZOCOR [Concomitant]
  3. AMBIEN [Concomitant]
  4. ISOPTIN TAB [Concomitant]
  5. FEMHRT [Concomitant]
  6. SYNTHROID [Concomitant]
  7. SINGULAIR [Concomitant]
  8. ZOMIG [Concomitant]
  9. TRAZODONE HCL [Concomitant]
  10. FLEXERIL [Concomitant]
  11. PULMICORT [Concomitant]
  12. NEXIUM [Concomitant]
  13. NASONEX [Concomitant]
  14. VIOXX [Concomitant]

REACTIONS (6)
  - BLOOD PRESSURE INCREASED [None]
  - BUNDLE BRANCH BLOCK RIGHT [None]
  - CHEST PAIN [None]
  - DIZZINESS [None]
  - DIZZINESS POSTURAL [None]
  - RASH [None]
